FAERS Safety Report 4915323-7 (Version None)
Quarter: 2006Q1

REPORT INFORMATION
  Report Type: 
  Country: None (occurrence: None)
  Receive Date: 20060217
  Receipt Date: 20060213
  Transmission Date: 20060701
  Serious: Yes (Hospitalization)
  Sender: FDA-Public Use
  Company Number: 2006/93

PATIENT
  Age: 82 Year
  Sex: Female

DRUGS (6)
  1. AMOXICILLINE RPG [Suspect]
     Dosage: 2G PER DAY
     Route: 048
     Dates: start: 20051126, end: 20051202
  2. CETIRIZINE HCL [Suspect]
     Dosage: 5MG PER DAY
     Route: 048
     Dates: start: 20040405, end: 20060118
  3. ISOPTIN [Suspect]
     Dosage: 80MG PER DAY
     Route: 048
  4. VASTAREL [Suspect]
     Dosage: 60MG PER DAY
     Route: 048
  5. TRANXENE [Suspect]
     Dosage: 10MG PER DAY
     Route: 048
  6. FOSAMAX [Suspect]
     Dosage: 10MG PER DAY
     Route: 048

REACTIONS (8)
  - ABDOMINAL PAIN [None]
  - CONSTIPATION [None]
  - DIZZINESS [None]
  - HEPATITIS CHOLESTATIC [None]
  - HEPATOCELLULAR DAMAGE [None]
  - JAUNDICE [None]
  - PYREXIA [None]
  - VOMITING [None]
